FAERS Safety Report 24363749 (Version 1)
Quarter: 2024Q3

REPORT INFORMATION
  Report Type: Spontaneous
  Country: GR (occurrence: GR)
  Receive Date: 20240925
  Receipt Date: 20240925
  Transmission Date: 20241016
  Serious: Yes (Other)
  Sender: CALLIDITAS THERAPEUTICS
  Company Number: GR-STADA-01298841

PATIENT
  Age: 55 Year
  Sex: Male

DRUGS (1)
  1. BUDESONIDE [Suspect]
     Active Substance: BUDESONIDE
     Indication: Product used for unknown indication

REACTIONS (1)
  - Diabetes mellitus [Unknown]
